FAERS Safety Report 25839354 (Version 4)
Quarter: 2025Q4

REPORT INFORMATION
  Report Type: Report from Study
  Country: CA (occurrence: CA)
  Receive Date: 20250924
  Receipt Date: 20251120
  Transmission Date: 20260117
  Serious: Yes (Hospitalization, Other)
  Sender: CELLTRION
  Company Number: CA-CELLTRION INC.-2025CA020195

PATIENT

DRUGS (2)
  1. OMALIZUMAB [Suspect]
     Active Substance: OMALIZUMAB
     Indication: Asthma
     Dosage: 375 MILLIGRAM, Q 2 WEEKS
     Route: 058
     Dates: start: 20250618
  2. OMALIZUMAB [Suspect]
     Active Substance: OMALIZUMAB
     Dosage: 375 MILLIGRAM, Q 2 WEEKS
     Route: 058
     Dates: start: 20250618

REACTIONS (7)
  - Medical induction of coma [Unknown]
  - Gastrointestinal haemorrhage [Unknown]
  - Pneumonia aspiration [Unknown]
  - Vomiting [Unknown]
  - Therapy interrupted [Unknown]
  - Infection [Unknown]
  - Fatigue [Unknown]

NARRATIVE: CASE EVENT DATE: 20250619
